FAERS Safety Report 8709491 (Version 2)
Quarter: 2013Q4

REPORT INFORMATION
  Report Type: Spontaneous
  Country: US (occurrence: US)
  Receive Date: 20120806
  Receipt Date: 20131025
  Transmission Date: 20140711
  Serious: Yes (Other)
  Sender: FDA-Public Use
  Company Number: US-BAYER-2012-076161

PATIENT
  Age: 29 Year
  Sex: Female
  Weight: 48.53 kg

DRUGS (4)
  1. MIRENA [Suspect]
     Indication: CONTRACEPTION
     Dosage: 20 MCG/24HR, CONT
     Route: 015
     Dates: start: 20100421, end: 20110816
  2. MACROBID [Concomitant]
     Dosage: 100 MG, BID X 5 DAYS
  3. MULTIVITAMIN [Concomitant]
     Dosage: UNK
  4. ADVIL [Concomitant]
     Dosage: UNK, UNK, AS NEEDED

REACTIONS (6)
  - Device dislocation [None]
  - Device dislocation [None]
  - Pain [None]
  - Procedural pain [None]
  - Injury [None]
  - Emotional disorder [None]
